FAERS Safety Report 9437072 (Version 1)
Quarter: 2013Q3

REPORT INFORMATION
  Report Type: Spontaneous
  Country: FR (occurrence: FR)
  Receive Date: 20130802
  Receipt Date: 20130802
  Transmission Date: 20140515
  Serious: Yes (Death, Hospitalization, Other)
  Sender: FDA-Public Use
  Company Number: FR-ASTELLAS-2013EU006581

PATIENT
  Age: 60 Year
  Sex: Male

DRUGS (6)
  1. PROGRAF [Suspect]
     Indication: LIVER TRANSPLANT
     Dosage: 1 MG, BID
     Route: 048
     Dates: start: 20130709
  2. ADVAGRAF [Suspect]
     Indication: LIVER TRANSPLANT
     Dosage: 1 MG, UNKNOWN/D
     Route: 048
     Dates: start: 201101
  3. MYCAMINE [Suspect]
     Indication: PROPHYLAXIS
     Dosage: 50 MG, UNKNOWN/D
     Route: 042
     Dates: start: 20130710, end: 20130715
  4. MYCAMINE [Suspect]
     Indication: CANDIDA INFECTION
     Dosage: 100 MG, UNKNOWN/D
     Route: 042
     Dates: start: 20130715, end: 20130717
  5. MYCAMINE [Suspect]
     Dosage: 200 MG, UNKNOWN/D
     Route: 042
     Dates: start: 20130717
  6. CELLCEPT                           /01275102/ [Concomitant]
     Dosage: UNK
     Route: 065

REACTIONS (8)
  - Intentional drug misuse [Unknown]
  - Drug ineffective [Fatal]
  - Transplant dysfunction [Fatal]
  - Hepatic necrosis [Fatal]
  - Candida infection [Fatal]
  - Renal failure [Unknown]
  - Biliary sepsis [Unknown]
  - Cholangitis [Unknown]
